FAERS Safety Report 15499466 (Version 2)
Quarter: 2019Q2

REPORT INFORMATION
  Report Type: Spontaneous
  Country: US (occurrence: US)
  Receive Date: 20181015
  Receipt Date: 20190529
  Transmission Date: 20190711
  Serious: No
  Sender: FDA-Public Use
  Company Number: US-PFIZER INC-2018401602

PATIENT
  Age: 77 Year
  Sex: Male
  Weight: 99.79 kg

DRUGS (1)
  1. SYNAREL [Suspect]
     Active Substance: NAFARELIN ACETATE
     Indication: PROSTATE CANCER
     Dosage: 4 ML, 2X/DAY [2 ML DOSE PER SPRAY, 4 SPRAYS A DAY, 2 SPRAYS PER EACH NOSTRIL TWICE PER DAY]
     Route: 045

REACTIONS (2)
  - Drug effective for unapproved indication [Unknown]
  - Off label use [Unknown]
